FAERS Safety Report 7656368-6 (Version None)
Quarter: 2011Q3

REPORT INFORMATION
  Report Type: 
  Country: None (occurrence: None)
  Receive Date: 20110804
  Receipt Date: 20110725
  Transmission Date: 20111222
  Serious: Yes (Death, Hospitalization, Other)
  Sender: FDA-Public Use
  Company Number: US-GLAXOSMITHKLINE-A0921853A

PATIENT
  Age: 67 Year
  Sex: Female
  Weight: 60.3 kg

DRUGS (15)
  1. WARFARIN SODIUM [Concomitant]
  2. CARDIZEM [Concomitant]
     Dosage: 15MG FOUR TIMES PER DAY
  3. FUROSEMIDE [Concomitant]
     Dosage: 80MG TWICE PER DAY
  4. FERROUS SULFATE TAB [Concomitant]
     Dosage: 325MG TWICE PER DAY
  5. MISOPROSTOL [Concomitant]
     Dosage: 200MG FOUR TIMES PER DAY
  6. ATENOLOL [Concomitant]
     Dosage: 25MG TWICE PER DAY
  7. SPIRONOLACTONE [Concomitant]
     Dosage: 25MG TWICE PER DAY
  8. ACETAMINOPHEN [Concomitant]
     Dosage: 325MG AS REQUIRED
  9. PROTONIX [Concomitant]
     Dosage: 40MG TWICE PER DAY
  10. FLOLAN [Suspect]
     Indication: PULMONARY ARTERIAL HYPERTENSION
     Dates: start: 20081201
  11. BENADRYL [Concomitant]
     Dosage: 125MG SIX TIMES PER DAY
  12. PREDNISONE [Concomitant]
  13. ANUSOL HC [Concomitant]
     Dosage: 25MG AS REQUIRED
  14. BACITRACIN [Concomitant]
  15. M.V.I. [Concomitant]
     Dosage: 1TAB PER DAY

REACTIONS (19)
  - GASTROINTESTINAL HAEMORRHAGE [None]
  - ASPIRATION [None]
  - INTERNATIONAL NORMALISED RATIO INCREASED [None]
  - CONVULSION [None]
  - THROMBOCYTOPENIA [None]
  - CARDIAC FAILURE [None]
  - STAPHYLOCOCCAL INFECTION [None]
  - PULMONARY THROMBOSIS [None]
  - CEREBRAL HAEMORRHAGE [None]
  - GENERAL PHYSICAL HEALTH DETERIORATION [None]
  - RECTAL HAEMORRHAGE [None]
  - ACUTE RESPIRATORY FAILURE [None]
  - PULMONARY HAEMORRHAGE [None]
  - PROCEDURAL COMPLICATION [None]
  - PH BODY FLUID [None]
  - HAEMORRHAGE [None]
  - ANAEMIA [None]
  - HAEMOPTYSIS [None]
  - BRONCHOPNEUMONIA [None]
